FAERS Safety Report 18982944 (Version 1)
Quarter: 2021Q1

REPORT INFORMATION
  Report Type: Spontaneous
  Country: AU (occurrence: AU)
  Receive Date: 20210308
  Receipt Date: 20210308
  Transmission Date: 20210420
  Serious: No
  Sender: FDA-Public Use
  Company Number: AU-TIME-CAP LABS, INC.-2107713

PATIENT

DRUGS (1)
  1. PARACETAMOL MOLECULE FROM AUSTRLIAN MARKET [Suspect]
     Active Substance: ACETAMINOPHEN

REACTIONS (1)
  - Drug ineffective [None]
